FAERS Safety Report 11467810 (Version 1)
Quarter: 2015Q3

REPORT INFORMATION
  Report Type: Spontaneous
  Country: ES (occurrence: ES)
  Receive Date: 20150908
  Receipt Date: 20150908
  Transmission Date: 20151125
  Serious: Yes (Death)
  Sender: FDA-Public Use
  Company Number: ES-ELI_LILLY_AND_COMPANY-ES201509002146

PATIENT
  Age: 58 Year
  Sex: Male
  Weight: 83 kg

DRUGS (16)
  1. SODIUM ENOXAPARIN [Suspect]
     Active Substance: ENOXAPARIN SODIUM
     Indication: MYOCARDIAL ISCHAEMIA
     Dosage: 40 MG, UNKNOWN
     Route: 042
     Dates: start: 20150616, end: 20150713
  2. INSULIN GLARGINE [Concomitant]
     Active Substance: INSULIN GLARGINE
     Dosage: 38 IU, UNK
     Dates: start: 20150629
  3. ASPIRIN                            /00002701/ [Suspect]
     Active Substance: ASPIRIN
     Indication: MYOCARDIAL ISCHAEMIA
     Dosage: 100 MG, UNKNOWN
     Route: 048
     Dates: start: 20150616, end: 20150713
  4. CEFTAZIDIME. [Concomitant]
     Active Substance: CEFTAZIDIME
     Dosage: 2 G, EVERY 8 HRS
     Dates: start: 20150702, end: 20150709
  5. IPRATROPIUM [Concomitant]
     Active Substance: IPRATROPIUM
     Dosage: 500 UG, EVERY 6 HRS
     Route: 048
     Dates: start: 20150707
  6. ESOMEPRAZOLE [Concomitant]
     Active Substance: ESOMEPRAZOLE
     Dosage: 20 MG, QD
     Dates: start: 20150616
  7. ACTRAPID [Concomitant]
     Active Substance: INSULIN HUMAN
     Dosage: UNK
     Dates: start: 20150627
  8. BUDESONIDE. [Concomitant]
     Active Substance: BUDESONIDE
     Dosage: 2 ML, BID
     Dates: start: 20150707
  9. EFIENT [Suspect]
     Active Substance: PRASUGREL HYDROCHLORIDE
     Indication: PRODUCT USED FOR UNKNOWN INDICATION
     Dosage: 10 MG, UNKNOWN
     Route: 048
     Dates: start: 20150616, end: 20150713
  10. LEVOTHYROXINE. [Concomitant]
     Active Substance: LEVOTHYROXINE
     Dosage: 75 UG, QD
     Route: 048
     Dates: start: 20150626
  11. METAMIZOL                          /06276702/ [Concomitant]
     Active Substance: METAMIZOLE
     Dosage: 1150 MG, EVERY 8 HRS
     Route: 048
     Dates: start: 20150626
  12. LACOSAMIDE [Concomitant]
     Active Substance: LACOSAMIDE
     Dosage: 200 MG, BID
     Route: 048
     Dates: start: 20150709
  13. CLONAZEPAM. [Concomitant]
     Active Substance: CLONAZEPAM
     Dosage: 0.5 MG, BID
     Route: 048
     Dates: start: 20150707
  14. VALPROATE SODIUM. [Concomitant]
     Active Substance: VALPROATE SODIUM
     Dosage: 500 MG, EVERY 8 HRS
     Route: 048
     Dates: start: 20150706
  15. PARACETAMOL [Concomitant]
     Active Substance: ACETAMINOPHEN
     Dosage: 1 G, EVERY 8 HRS
     Route: 048
     Dates: start: 20150616
  16. LEVETIRACETAM. [Concomitant]
     Active Substance: LEVETIRACETAM
     Dosage: 1 G, BID
     Route: 048
     Dates: start: 20150701

REACTIONS (4)
  - Hypoxic-ischaemic encephalopathy [Fatal]
  - Haemoptysis [Fatal]
  - Myocardial ischaemia [Fatal]
  - Tracheal haemorrhage [Fatal]

NARRATIVE: CASE EVENT DATE: 20150713
